FAERS Safety Report 13770820 (Version 1)
Quarter: 2017Q3

REPORT INFORMATION
  Report Type: Spontaneous
  Country: US (occurrence: US)
  Receive Date: 20170720
  Receipt Date: 20170720
  Transmission Date: 20171127
  Serious: Yes (Death)
  Sender: FDA-Public Use
  Company Number: None

PATIENT
  Age: 74 Year
  Sex: Female

DRUGS (1)
  1. REVLIMID [Suspect]
     Active Substance: LENALIDOMIDE
     Indication: PLASMA CELL MYELOMA
     Route: 048
     Dates: start: 20170619

REACTIONS (4)
  - Urinary tract infection [None]
  - Unresponsive to stimuli [None]
  - Clostridium difficile colitis [None]
  - Acute kidney injury [None]

NARRATIVE: CASE EVENT DATE: 20170706
